FAERS Safety Report 21046888 (Version 2)
Quarter: 2022Q3

REPORT INFORMATION
  Report Type: Report from Study
  Country: JP (occurrence: JP)
  Receive Date: 20220706
  Receipt Date: 20220808
  Transmission Date: 20221027
  Serious: Yes (Death, Other)
  Sender: FDA-Public Use
  Company Number: JP-ASTELLAS-2022JP009993

PATIENT
  Age: 79 Year
  Sex: Male
  Weight: 53 kg

DRUGS (6)
  1. ENFORTUMAB VEDOTIN [Suspect]
     Active Substance: ENFORTUMAB VEDOTIN
     Indication: Transitional cell carcinoma
     Route: 065
     Dates: start: 20220107, end: 20220311
  2. PEMBROLIZUMAB [Concomitant]
     Active Substance: PEMBROLIZUMAB
     Indication: Transitional cell carcinoma
     Dosage: UNK UNK, UNKNOWN FREQ, NON-RESPONDER
     Route: 065
     Dates: start: 20210720
  3. HEPARINOID [Concomitant]
     Indication: Product used for unknown indication
     Dosage: UNK UNK, TWICE DAILY
     Route: 050
     Dates: start: 20220107, end: 20220409
  4. EURAX [Concomitant]
     Active Substance: CROTAMITON
     Indication: Product used for unknown indication
     Dosage: UNK UNK, THRICE DAILY
     Route: 050
     Dates: start: 20220111, end: 20220409
  5. DIPHENHYDRAMINE [Concomitant]
     Active Substance: DIPHENHYDRAMINE
     Indication: Product used for unknown indication
     Dosage: UNK UNK, THRICE DAILY
     Route: 050
     Dates: start: 20220111, end: 20220409
  6. Azunol [Concomitant]
     Indication: Product used for unknown indication
     Dosage: UNK UNK, ONCE DAILY
     Route: 050
     Dates: start: 20220126, end: 20220409

REACTIONS (1)
  - Malignant neoplasm progression [Fatal]

NARRATIVE: CASE EVENT DATE: 20220409
